FAERS Safety Report 7125529-7 (Version None)
Quarter: 2010Q4

REPORT INFORMATION
  Report Type: 
  Country: None (occurrence: None)
  Receive Date: 20101129
  Receipt Date: 20101122
  Transmission Date: 20110411
  Serious: Yes (Other)
  Sender: FDA-Public Use
  Company Number: PK-ROCHE-740499

PATIENT
  Age: 40 Year
  Sex: Female
  Weight: 103 kg

DRUGS (6)
  1. ACTEMRA [Suspect]
     Route: 042
     Dates: start: 20090915
  2. ACTEMRA [Suspect]
     Route: 042
     Dates: start: 20091015
  3. PREDNISOLONE [Concomitant]
     Dosage: FREQUENCY: 1/2 DAILY
     Dates: start: 20090901
  4. METHOTREXATE [Concomitant]
     Route: 048
     Dates: start: 20090901
  5. METHOTREXATE [Concomitant]
     Route: 048
  6. HYDROXYCHLOROQUINE SULFATE [Concomitant]
     Route: 048
     Dates: start: 20090901

REACTIONS (5)
  - BLISTER [None]
  - DYSURIA [None]
  - FOLLICULITIS [None]
  - ORAL CANDIDIASIS [None]
  - VIITH NERVE PARALYSIS [None]
